FAERS Safety Report 9116224 (Version 1)
Quarter: 2013Q1

REPORT INFORMATION
  Report Type: Spontaneous
  Country: NL (occurrence: NL)
  Receive Date: 20130225
  Receipt Date: 20130225
  Transmission Date: 20140127
  Serious: Yes (Life-Threatening, Hospitalization)
  Sender: FDA-Public Use
  Company Number: NL-ALEXION-A201300300

PATIENT
  Age: 35 Year
  Sex: Male

DRUGS (8)
  1. SOLIRIS 300MG [Suspect]
     Indication: PAROXYSMAL NOCTURNAL HAEMOGLOBINURIA
     Dosage: 600 MG, QW
     Route: 042
     Dates: start: 20080528, end: 20080618
  2. SOLIRIS 300MG [Suspect]
     Dosage: 900 MG, Q2W
     Route: 042
     Dates: start: 20080625
  3. DEXAMETHASON [Concomitant]
     Indication: PLASMA CELL MYELOMA
     Dosage: 8 MG, BID
     Route: 048
     Dates: start: 20121210
  4. DEXAMETHASON [Concomitant]
     Indication: NERVOUS SYSTEM DISORDER
     Dosage: 4 MG, BID
     Route: 048
     Dates: end: 20121224
  5. PARACETAMOL [Concomitant]
     Indication: PAIN
     Dosage: 1 G, QID
     Route: 048
     Dates: start: 20121210, end: 20130111
  6. OXYCONTIN [Concomitant]
     Indication: PAIN
     Dosage: 20 MG, BID WITH 10 MG EXTRA PRN
     Route: 048
     Dates: start: 20121210, end: 20130130
  7. NADROPARIN [Concomitant]
     Indication: PROPHYLAXIS
     Dosage: 2850 ?G, QD
     Route: 058
     Dates: start: 20121208, end: 20130211
  8. VALACICLOVIR [Concomitant]
     Indication: PROPHYLAXIS
     Dosage: 500 MG, BID
     Route: 048
     Dates: start: 20121219, end: 20121220

REACTIONS (4)
  - Meningoencephalitis bacterial [Recovered/Resolved]
  - Streptococcal sepsis [Recovered/Resolved]
  - Streptococcal urinary tract infection [Recovered/Resolved]
  - Haemolysis [Recovered/Resolved]
